FAERS Safety Report 8826428 (Version 4)
Quarter: 2012Q4

REPORT INFORMATION
  Report Type: Report from Study
  Country: US (occurrence: US)
  Receive Date: 20121008
  Receipt Date: 20121105
  Transmission Date: 20130627
  Serious: Yes (Death, Life-Threatening, Hospitalization, Other)
  Sender: FDA-Public Use
  Company Number: US-JNJFOC-20120913001

PATIENT
  Age: 64 Year
  Sex: Female
  Weight: 50.7 kg

DRUGS (16)
  1. PALIPERIDONE PALMITATE [Suspect]
     Indication: SCHIZOPHRENIA
     Route: 030
     Dates: start: 20120918
  2. PALIPERIDONE PALMITATE [Suspect]
     Indication: SCHIZOPHRENIA
     Route: 030
     Dates: start: 20120619
  3. PALIPERIDONE PALMITATE [Suspect]
     Route: 030
  4. PALIPERIDONE PALMITATE [Suspect]
     Indication: SCHIZOPHRENIA
     Route: 030
  5. DULCOLAX [Concomitant]
     Indication: CONSTIPATION
     Route: 048
     Dates: start: 201202
  6. ALBUTEROL [Concomitant]
     Indication: ASTHMA
     Route: 055
     Dates: start: 201202, end: 20120926
  7. UNSPECIFIED OTC MEDICATIONS [Concomitant]
     Indication: DRY EYE
     Route: 047
     Dates: start: 201202
  8. ATIVAN [Concomitant]
     Indication: ANXIETY
     Route: 048
     Dates: start: 20120613
  9. ATIVAN [Concomitant]
     Indication: ANXIETY
     Route: 048
     Dates: start: 201202, end: 20120612
  10. ATIVAN [Concomitant]
     Indication: SCHIZOPHRENIA
     Route: 048
     Dates: start: 20120613
  11. ATIVAN [Concomitant]
     Indication: SCHIZOPHRENIA
     Route: 048
     Dates: start: 201202, end: 20120612
  12. COLACE [Concomitant]
     Indication: CONSTIPATION
     Route: 048
     Dates: start: 20120525
  13. NYSTATIN [Concomitant]
     Indication: TINEA PEDIS
     Dosage: dose was mentioned as 19
     Route: 061
     Dates: start: 201202
  14. OMEPRAZOLE [Concomitant]
     Indication: GASTROOESOPHAGEAL REFLUX DISEASE
     Route: 048
     Dates: start: 201202
  15. SYNTHROID [Concomitant]
     Indication: HYPOTHYROIDISM
     Route: 048
     Dates: start: 201202
  16. ACETAMINOPHEN [Concomitant]
     Indication: OSTEOARTHRITIS
     Route: 048
     Dates: start: 201202

REACTIONS (3)
  - Megacolon [Fatal]
  - Syncope [Recovered/Resolved]
  - Chronic obstructive pulmonary disease [Recovered/Resolved]
